FAERS Safety Report 8581292 (Version 4)
Quarter: 2013Q2

REPORT INFORMATION
  Report Type: Report from Study
  Country: US (occurrence: US)
  Receive Date: 20120525
  Receipt Date: 20130410
  Transmission Date: 20140414
  Serious: Yes (Other)
  Sender: FDA-Public Use
  Company Number: US-GILEAD-2012-0055153

PATIENT
  Age: 70 Year
  Sex: Female

DRUGS (7)
  1. PLACEBO [Suspect]
     Indication: BRONCHIECTASIS
     Dosage: 75 MG, TID
     Route: 055
     Dates: start: 20120217, end: 20120315
  2. PLACEBO [Suspect]
     Dosage: 75 MG, TID
     Route: 055
     Dates: start: 20111221, end: 20120103
  3. AZTREONAM LYSINE [Suspect]
     Indication: BRONCHIECTASIS
     Dosage: 75 MG, TID
     Route: 055
     Dates: start: 20120412, end: 20120509
  4. ALBUTEROL                          /00139501/ [Concomitant]
     Indication: BRONCHIECTASIS
     Dosage: UNK
     Dates: start: 20091204
  5. AZELASTINE [Concomitant]
     Indication: SINUSITIS
     Dosage: UNK
     Dates: start: 20100209
  6. TRAVOPROST [Concomitant]
     Indication: GLAUCOMA
     Dosage: UNK
     Dates: start: 20091030
  7. RALOXIFENE [Concomitant]
     Indication: MENOPAUSE
     Dosage: UNK
     Dates: start: 20091007

REACTIONS (1)
  - Type IV hypersensitivity reaction [Recovered/Resolved]
